FAERS Safety Report 14551367 (Version 1)
Quarter: 2018Q1

REPORT INFORMATION
  Report Type: Spontaneous
  Country: PL (occurrence: PL)
  Receive Date: 20180220
  Receipt Date: 20180220
  Transmission Date: 20180509
  Serious: Yes (Hospitalization, Other)
  Sender: FDA-Public Use
  Company Number: PL-VISTAPHARM, INC.-VER201712-001392

PATIENT
  Age: 5 Year
  Sex: Female

DRUGS (2)
  1. TEGRETOL [Suspect]
     Active Substance: CARBAMAZEPINE
     Indication: EPILEPSY
  2. VALPROIC ACID. [Suspect]
     Active Substance: VALPROIC ACID
     Indication: EPILEPSY

REACTIONS (5)
  - Pancreatitis acute [Unknown]
  - Thrombocytopenia [Unknown]
  - Drug interaction [Unknown]
  - Pericardial effusion [Unknown]
  - Bradycardia [Unknown]
